FAERS Safety Report 10983545 (Version 1)
Quarter: 2015Q2

REPORT INFORMATION
  Report Type: Report from Study
  Country: US (occurrence: US)
  Receive Date: 20150403
  Receipt Date: 20150403
  Transmission Date: 20150821
  Serious: Yes (Hospitalization, Other)
  Sender: FDA-Public Use
  Company Number: US-ABBVIE-15P-163-1367969-00

PATIENT
  Age: 53 Year
  Sex: Female

DRUGS (1)
  1. HUMIRA [Suspect]
     Active Substance: ADALIMUMAB
     Indication: RHEUMATOID ARTHRITIS
     Dosage: LAST DOSE
     Route: 058
     Dates: start: 20130628, end: 20150316

REACTIONS (4)
  - Costochondritis [Unknown]
  - Malaise [Unknown]
  - Blood cholesterol increased [Unknown]
  - Chest pain [Unknown]

NARRATIVE: CASE EVENT DATE: 201501
